FAERS Safety Report 7371678-8 (Version None)
Quarter: 2011Q1

REPORT INFORMATION
  Report Type: 
  Country: None (occurrence: None)
  Receive Date: 20110324
  Receipt Date: 20110318
  Transmission Date: 20110831
  Serious: Yes (Death)
  Sender: FDA-Public Use
  Company Number: JP-ASTRAZENECA-2011SE13652

PATIENT
  Age: 28241 Day
  Sex: Female

DRUGS (51)
  1. CATABON [Concomitant]
     Route: 042
     Dates: start: 20110125, end: 20110125
  2. ELASPOL [Concomitant]
     Route: 042
     Dates: start: 20110124, end: 20110206
  3. ALBUMIN (HUMAN) [Concomitant]
     Route: 042
     Dates: start: 20110124, end: 20110126
  4. NOREPINEPHRINE BITARTRATE [Concomitant]
     Dates: start: 20110211, end: 20110211
  5. MEROPEN [Suspect]
     Indication: INTESTINAL ISCHAEMIA
     Route: 042
     Dates: start: 20110124, end: 20110124
  6. DORMICUM [Concomitant]
     Route: 042
     Dates: start: 20110124, end: 20110124
  7. DORMICUM [Concomitant]
     Route: 042
     Dates: start: 20110126, end: 20110126
  8. GASTER [Concomitant]
     Dates: start: 20110125, end: 20110209
  9. FLURBIPROFEN [Concomitant]
     Dates: start: 20110207, end: 20110207
  10. ATROPINE SULFATE [Concomitant]
     Dates: start: 20110211, end: 20110211
  11. PENTAZOCINE LACTATE [Concomitant]
     Route: 030
     Dates: start: 20110124, end: 20110124
  12. LASIX [Concomitant]
     Dates: start: 20110129, end: 20110206
  13. LASIX [Concomitant]
     Dates: start: 20110207, end: 20110211
  14. HUMULIN R [Concomitant]
     Route: 042
     Dates: start: 20110201, end: 20110211
  15. VEEN-F [Concomitant]
     Route: 042
     Dates: start: 20110207, end: 20110207
  16. EPINEPHRINE [Concomitant]
     Dates: start: 20110211, end: 20110211
  17. ZOSYN [Suspect]
     Route: 065
     Dates: start: 20110208, end: 20110209
  18. PENTAZOCINE LACTATE [Concomitant]
     Route: 042
     Dates: start: 20110202, end: 20110202
  19. PLASMA PROTEIN FRACTION (HUMAN) [Concomitant]
     Route: 042
     Dates: start: 20110124, end: 20110207
  20. MEROPEN [Suspect]
     Route: 042
     Dates: start: 20110125, end: 20110130
  21. MEROPEN [Suspect]
     Route: 042
     Dates: start: 20110201, end: 20110203
  22. ZOSYN [Suspect]
     Route: 065
     Dates: start: 20110210, end: 20110210
  23. PRODIF [Concomitant]
     Route: 065
     Dates: start: 20110208, end: 20110211
  24. PEMIROC [Concomitant]
     Dates: start: 20110204, end: 20110205
  25. FENTANYL [Concomitant]
     Indication: ANAESTHESIA PROCEDURE
     Route: 042
     Dates: start: 20110124, end: 20110124
  26. CATABON [Concomitant]
     Route: 042
     Dates: start: 20110124, end: 20110124
  27. CATABON [Concomitant]
     Route: 042
     Dates: start: 20110211, end: 20110211
  28. KENKETSU GLOVENIN-I-NICHIYAKU [Concomitant]
     Route: 042
     Dates: start: 20110124, end: 20110126
  29. BUSCOPAN [Concomitant]
     Route: 042
     Dates: start: 20110124, end: 20110124
  30. GASTER [Concomitant]
     Dates: start: 20110124, end: 20110124
  31. GASTER [Concomitant]
     Dates: start: 20110210, end: 20110210
  32. PALUX [Concomitant]
     Route: 042
     Dates: start: 20110125, end: 20110207
  33. CAPROCIN [Concomitant]
     Dosage: 10 IU (1,000S)
     Route: 058
     Dates: start: 20110203, end: 20110211
  34. SANDOSTATIN [Concomitant]
     Route: 058
     Dates: start: 20110207, end: 20110210
  35. ADONA [Concomitant]
     Dates: start: 20110211, end: 20110211
  36. SOLU-CORTEF [Concomitant]
     Dates: start: 20110211, end: 20110211
  37. MEROPEN [Suspect]
     Indication: PERITONITIS
     Route: 042
     Dates: start: 20110124, end: 20110124
  38. VANCOMYCIN HYDROCHLORIDE [Suspect]
     Route: 065
     Dates: start: 20110210, end: 20110210
  39. PRODIF [Concomitant]
     Route: 065
     Dates: start: 20110201, end: 20110203
  40. CATABON [Concomitant]
     Route: 042
     Dates: start: 20110126, end: 20110126
  41. FOY [Concomitant]
     Route: 042
     Dates: start: 20110124, end: 20110201
  42. PEMIROC [Concomitant]
     Dates: start: 20110127, end: 20110127
  43. LASIX [Concomitant]
     Dates: start: 20110128, end: 20110128
  44. MEROPEN [Suspect]
     Route: 042
     Dates: start: 20110125, end: 20110130
  45. MEROPEN [Suspect]
     Route: 042
     Dates: start: 20110201, end: 20110203
  46. POTACOL-R [Concomitant]
     Route: 042
     Dates: start: 20110124, end: 20110124
  47. TERPERAN [Concomitant]
     Route: 042
     Dates: start: 20110124, end: 20110124
  48. PEMIROC [Concomitant]
     Dates: start: 20110202, end: 20110202
  49. PEMIROC [Concomitant]
     Dates: start: 20110206, end: 20110207
  50. CAPROCIN [Concomitant]
     Dosage: 10 IU (1,000S)
     Route: 058
     Dates: start: 20110201, end: 20110201
  51. VEEN-F [Concomitant]
     Route: 042
     Dates: start: 20110210, end: 20110211

REACTIONS (1)
  - ENTEROCOLITIS HAEMORRHAGIC [None]
